FAERS Safety Report 5685959-7 (Version None)
Quarter: 2008Q1

REPORT INFORMATION
  Report Type: 
  Country: None (occurrence: None)
  Receive Date: 20080328
  Receipt Date: 20070925
  Transmission Date: 20080703
  Serious: No
  Sender: FDA-Public Use
  Company Number: US-BAYER-US-2007-036157

PATIENT
  Age: 31 Year
  Sex: Female
  Weight: 106 kg

DRUGS (2)
  1. MIRENA [Suspect]
     Indication: MENSTRUATION IRREGULAR
     Route: 015
     Dates: start: 20070911
  2. AVANDIA [Concomitant]
     Indication: DIABETES MELLITUS
     Route: 048

REACTIONS (7)
  - ABDOMINAL DISTENSION [None]
  - IRRITABILITY [None]
  - MENSTRUAL DISORDER [None]
  - MOOD SWINGS [None]
  - PAIN [None]
  - PROCEDURAL PAIN [None]
  - PYREXIA [None]
